FAERS Safety Report 4624049-9 (Version None)
Quarter: 2005Q1

REPORT INFORMATION
  Report Type: 
  Country: None (occurrence: None)
  Receive Date: 20050329
  Receipt Date: 20050316
  Transmission Date: 20050727
  Serious: Yes (Life-Threatening, Hospitalization)
  Sender: FDA-Public Use
  Company Number: 2005043166

PATIENT
  Age: 75 Year
  Sex: Male
  Weight: 76 kg

DRUGS (1)
  1. ATORVASTATIN CALCIUM [Suspect]
     Indication: HYPERLIPIDAEMIA
     Dosage: 20 MG (DAILY); ORAL
     Route: 048
     Dates: start: 20010101

REACTIONS (10)
  - ANAEMIA [None]
  - APATHY [None]
  - ASTHENIA [None]
  - BLOOD CREATININE INCREASED [None]
  - DIALYSIS [None]
  - HYPERKALAEMIA [None]
  - MYOGLOBIN BLOOD INCREASED [None]
  - NAUSEA [None]
  - RENAL DISORDER [None]
  - VOMITING [None]
